FAERS Safety Report 7607178-7 (Version None)
Quarter: 2011Q3

REPORT INFORMATION
  Report Type: 
  Country: None (occurrence: None)
  Receive Date: 20110713
  Receipt Date: 20110701
  Transmission Date: 20111222
  Serious: Yes (Other)
  Sender: FDA-Public Use
  Company Number: JP-ELI_LILLY_AND_COMPANY-JP201106006892

PATIENT
  Age: 81 Year
  Sex: Female

DRUGS (8)
  1. EVISTA [Suspect]
     Dosage: UNK
     Route: 048
  2. WARFARIN SODIUM [Concomitant]
     Route: 048
  3. DOGMATYL [Concomitant]
  4. BIOFERMIN [Concomitant]
  5. IRBESARTAN [Concomitant]
  6. THYRADIN [Concomitant]
  7. DIAZEPAM [Concomitant]
  8. OMEPRAZOLE [Concomitant]

REACTIONS (2)
  - DIZZINESS [None]
  - CEREBRAL INFARCTION [None]
